FAERS Safety Report 5877266-4 (Version None)
Quarter: 2008Q3

REPORT INFORMATION
  Report Type: 
  Country: None (occurrence: None)
  Receive Date: 20080908
  Receipt Date: 20080826
  Transmission Date: 20090109
  Serious: No
  Sender: FDA-Public Use
  Company Number: 2008-182884-NL

PATIENT

DRUGS (1)
  1. ETONOGESTREL (BATCH #: 761032/774684) [Suspect]
     Dosage: DF TRANSPLACENTAL
     Route: 064
     Dates: start: 20080101

REACTIONS (3)
  - ABORTION INDUCED [None]
  - DRUG EXPOSURE DURING PREGNANCY [None]
  - FOETAL DISORDER [None]
